FAERS Safety Report 24708122 (Version 4)
Quarter: 2025Q1

REPORT INFORMATION
  Report Type: Spontaneous
  Country: US (occurrence: US)
  Receive Date: 20241206
  Receipt Date: 20250325
  Transmission Date: 20250408
  Serious: No
  Sender: SANOFI AVENTIS
  Company Number: US-SA-2024SA359443

PATIENT
  Age: 74 Year
  Sex: Female

DRUGS (2)
  1. DUPIXENT [Suspect]
     Active Substance: DUPILUMAB
     Indication: Asthma
     Dosage: 300 MG, QOW
     Route: 058
     Dates: start: 202410
  2. DUPIXENT [Suspect]
     Active Substance: DUPILUMAB
     Dosage: 300 MG, QOW
     Route: 058
     Dates: start: 20250116

REACTIONS (4)
  - Rash erythematous [Recovered/Resolved]
  - Rash maculo-papular [Unknown]
  - Pruritus [Unknown]
  - Rash macular [Unknown]

NARRATIVE: CASE EVENT DATE: 20240101
